FAERS Safety Report 8085310-1 (Version None)
Quarter: 2012Q1

REPORT INFORMATION
  Report Type: 
  Country: None (occurrence: None)
  Receive Date: 20120128
  Receipt Date: 20110315
  Transmission Date: 20120608
  Serious: No
  Sender: FDA-Public Use
  Company Number: US-ABBOTT-11P-163-0711853-00

PATIENT
  Age: 58 Year
  Sex: Female

DRUGS (16)
  1. MELOXICAM [Concomitant]
     Indication: RHEUMATOID ARTHRITIS
     Dosage: 7.5 MG- 2 TABS DAILY
  2. PATANOL [Concomitant]
     Indication: HYPERSENSITIVITY
     Dosage: 0.1% O.P. 5 GTTS EACH EYE
  3. BUSPIRONE HCL [Concomitant]
     Indication: DEPRESSION
     Dosage: 2 -10MG TABS THREE TIMES A DAY
  4. RANITIDINE [Concomitant]
     Indication: GASTROOESOPHAGEAL REFLUX DISEASE
     Dosage: 150 MG TWICE A DAY
  5. RISPERIDONE [Concomitant]
     Indication: DEPRESSION
  6. FLONASE [Concomitant]
     Indication: SEASONAL ALLERGY
     Dosage: EACH NOSTRIL
  7. TRAZODONE HCL [Concomitant]
     Indication: INSOMNIA
  8. HUMIRA [Suspect]
     Indication: RHEUMATOID ARTHRITIS
     Dates: start: 20101201
  9. METHOTREXATE [Concomitant]
     Indication: PRODUCT USED FOR UNKNOWN INDICATION
  10. OXCARBAZEPINE [Concomitant]
     Indication: DEPRESSION
     Dosage: 300MGS- 5 TABS DAILY
  11. RAMIPRIL [Concomitant]
     Indication: PRODUCT USED FOR UNKNOWN INDICATION
  12. LEXAPRO [Concomitant]
     Indication: DEPRESSION
  13. ALENDRONATE SODIUM [Concomitant]
     Indication: SUPPLEMENTATION THERAPY
  14. OMEPRAZOLE [Concomitant]
     Indication: GASTROOESOPHAGEAL REFLUX DISEASE
     Dosage: 20 MG - 2 TABS DAILY
  15. PRAVASTATIN [Concomitant]
     Indication: BLOOD CHOLESTEROL INCREASED
  16. ATENOLOL [Concomitant]
     Indication: PRODUCT USED FOR UNKNOWN INDICATION
     Dosage: 100MG IN AM + 50MG IN PM

REACTIONS (2)
  - DRUG DOSE OMISSION [None]
  - WRONG TECHNIQUE IN DRUG USAGE PROCESS [None]
